FAERS Safety Report 9709416 (Version 1)
Quarter: 2013Q4

REPORT INFORMATION
  Report Type: Report from Study
  Country: NL (occurrence: NL)
  Receive Date: 20131126
  Receipt Date: 20131126
  Transmission Date: 20140711
  Serious: Yes (Hospitalization)
  Sender: FDA-Public Use
  Company Number: NL-ROCHE-1304358

PATIENT
  Age: 57 Year
  Sex: Female

DRUGS (6)
  1. BEVACIZUMAB [Suspect]
     Indication: BREAST CANCER
     Dosage: LAST DATE FOR DOSE ADMINISTERED ON 17/APR/2013
     Route: 042
     Dates: start: 20130306
  2. PACLITAXEL [Suspect]
     Indication: BREAST CANCER
     Dosage: LAST DATE FOR DOSE ADMINISTERED ON 17/APR/2013
     Route: 042
     Dates: start: 20130306
  3. NEXIUM [Concomitant]
     Route: 065
     Dates: start: 20120927
  4. TEMAZEPAM [Concomitant]
     Route: 065
     Dates: start: 20130321
  5. CALCICHEW D3 [Concomitant]
     Dosage: 500/400
     Route: 065
     Dates: start: 20120927
  6. NITRAZEPAM [Concomitant]
     Route: 065
     Dates: start: 20120927

REACTIONS (1)
  - Catheter site extravasation [Recovered/Resolved]
